FAERS Safety Report 8132968-4 (Version None)
Quarter: 2012Q1

REPORT INFORMATION
  Report Type: 
  Country: None (occurrence: None)
  Receive Date: 20120213
  Receipt Date: 20120210
  Transmission Date: 20120608
  Serious: No
  Sender: FDA-Public Use
  Company Number: US-BAYER-2012-014116

PATIENT
  Age: 44 Year
  Sex: Female
  Weight: 110.66 kg

DRUGS (8)
  1. AMLODIPINE [Concomitant]
     Dosage: 10 MG, UNK
     Route: 048
  2. LEXAPRO [Concomitant]
     Dosage: 10 MG, UNK
     Route: 048
  3. IBUPROFEN (ADVIL) [Concomitant]
     Dosage: 200 MG, UNK
     Route: 048
  4. TYLENOL-500 [Concomitant]
     Dosage: 325 MG, UNK
     Route: 048
  5. BETASERON [Suspect]
     Indication: PRODUCT USED FOR UNKNOWN INDICATION
     Dosage: 0.3 MG, UNK
     Route: 058
  6. CALCIUM WITH VITAMIN D [Concomitant]
     Dosage: UNK
     Route: 048
  7. LISINOPRIL [Concomitant]
     Dosage: 10 MG, UNK
     Route: 048
  8. VITAMIN D2 [Concomitant]
     Dosage: 400 U, UNK
     Route: 048

REACTIONS (3)
  - ABDOMINAL PAIN UPPER [None]
  - MUSCLE TIGHTNESS [None]
  - DYSKINESIA [None]
